FAERS Safety Report 7897563-0 (Version None)
Quarter: 2011Q4

REPORT INFORMATION
  Report Type: 
  Country: None (occurrence: None)
  Receive Date: 20111107
  Receipt Date: 20111028
  Transmission Date: 20120403
  Serious: Yes (Other)
  Sender: FDA-Public Use
  Company Number: FR-ELI_LILLY_AND_COMPANY-FR201110007826

PATIENT
  Age: 69 Year
  Sex: Male

DRUGS (1)
  1. EFFIENT [Suspect]
     Dosage: UNK
     Route: 048
     Dates: start: 20111025

REACTIONS (1)
  - DEVICE OCCLUSION [None]
